FAERS Safety Report 22949584 (Version 9)
Quarter: 2023Q4

REPORT INFORMATION
  Report Type: Report from Study
  Country: US (occurrence: US)
  Receive Date: 20230915
  Receipt Date: 20231215
  Transmission Date: 20240110
  Serious: Yes (Other)
  Sender: FDA-Public Use
  Company Number: US-002147023-NVSC2023US200232

PATIENT
  Age: 26 Year
  Sex: Female

DRUGS (3)
  1. KESIMPTA [Suspect]
     Active Substance: OFATUMUMAB
     Indication: Relapsing multiple sclerosis
     Dosage: 20 MG, QW (FIRST DOSE)
     Route: 058
     Dates: start: 20230913
  2. KESIMPTA [Suspect]
     Active Substance: OFATUMUMAB
     Dosage: 20 MG, QW (SECOND DOSE)
     Route: 058
     Dates: start: 20230920
  3. KESIMPTA [Suspect]
     Active Substance: OFATUMUMAB
     Dosage: 20 MG, QW (THIRD DOSE)
     Route: 058
     Dates: start: 20230929

REACTIONS (17)
  - Pain in extremity [Recovered/Resolved]
  - Multiple sclerosis [Unknown]
  - Nausea [Unknown]
  - Pyrexia [Unknown]
  - Dyspnoea [Unknown]
  - Back pain [Unknown]
  - Insomnia [Unknown]
  - Migraine [Unknown]
  - Hypoaesthesia [Unknown]
  - Tremor [Recovered/Resolved]
  - Influenza like illness [Recovered/Resolved]
  - Dizziness [Recovered/Resolved]
  - Urticaria [Unknown]
  - Vomiting [Unknown]
  - Fatigue [Unknown]
  - Injection site pruritus [Unknown]
  - Injection site swelling [Unknown]

NARRATIVE: CASE EVENT DATE: 20230913
